FAERS Safety Report 25191853 (Version 1)
Quarter: 2025Q2

REPORT INFORMATION
  Report Type: Spontaneous
  Country: US (occurrence: US)
  Receive Date: 20250414
  Receipt Date: 20250414
  Transmission Date: 20250716
  Serious: No
  Sender: AMGEN
  Company Number: US-AMGEN-USASP2025069360

PATIENT
  Age: 77 Year
  Sex: Male

DRUGS (5)
  1. PROLIA [Suspect]
     Active Substance: DENOSUMAB
     Indication: Bone disorder
     Dosage: 60 MILLIGRAM, Q6MO
     Route: 058
     Dates: start: 20240828
  2. PROLIA [Suspect]
     Active Substance: DENOSUMAB
     Indication: Compression fracture
  3. OXYCONTIN [Concomitant]
     Active Substance: OXYCODONE HYDROCHLORIDE
     Indication: Bone disorder
  4. OXYCONTIN [Concomitant]
     Active Substance: OXYCODONE HYDROCHLORIDE
     Indication: Pain
  5. MITOMYCIN [Concomitant]
     Active Substance: MITOMYCIN
     Indication: Bladder cancer

REACTIONS (3)
  - Weight decreased [Unknown]
  - Eating disorder [Unknown]
  - Asthenia [Unknown]

NARRATIVE: CASE EVENT DATE: 20240801
